FAERS Safety Report 6544339-2 (Version None)
Quarter: 2010Q1

REPORT INFORMATION
  Report Type: 
  Country: None (occurrence: None)
  Receive Date: 20100120
  Receipt Date: 20100120
  Transmission Date: 20100710
  Serious: Yes (Hospitalization)
  Sender: FDA-Public Use
  Company Number: None

PATIENT
  Age: 83 Year
  Sex: Male
  Weight: 74.8435 kg

DRUGS (2)
  1. TYLENOL PM 500 MG TYLENOL [Suspect]
     Indication: INSOMNIA
     Dosage: 2 CAPLETS NIGHTLY PO OCCASIONAL
     Route: 048
  2. TYLENOL PM 500 MG TYLENOL [Suspect]
     Indication: INSOMNIA
     Dosage: 2 CAPLETS NIGHTLY PO OCCASIONAL
     Route: 048

REACTIONS (3)
  - MYOCARDIAL INFARCTION [None]
  - PAIN [None]
  - PRODUCT QUALITY ISSUE [None]
